FAERS Safety Report 25154857 (Version 6)
Quarter: 2025Q4

REPORT INFORMATION
  Report Type: Other
  Country: EU (occurrence: EU)
  Receive Date: 20250403
  Receipt Date: 20251226
  Transmission Date: 20260118
  Serious: Yes (Hospitalization, Disabling, Other)
  Sender: STRIDES
  Company Number: None

PATIENT
  Age: 57 Year
  Sex: Female
  Weight: 59 kg

DRUGS (170)
  1. PREGABALIN [Suspect]
     Active Substance: PREGABALIN
     Indication: Product used for unknown indication
     Dosage: 1 DF, BID CAPSULE
     Route: 065
  2. PREGABALIN [Suspect]
     Active Substance: PREGABALIN
     Dosage: 0.5 PER DAY UNK, BID (100 MG CAPSULE TBLT/84 (TAKE 1 CAPSULE MORNING AND EVENING, FOR 3 MONTHS) CAPS
     Route: 048
  3. PREGABALIN [Suspect]
     Active Substance: PREGABALIN
     Dosage: UNK, BID (100 MG CAPSULE TBLT/84 (TAKE 1 CAPSULE MORNING AND EVENING, FOR 3 MONTHS)
     Route: 048
  4. PREGABALIN [Suspect]
     Active Substance: PREGABALIN
     Dosage: 100 MILLIGRAM
     Route: 048
  5. CETIRIZINE [Suspect]
     Active Substance: CETIRIZINE HYDROCHLORIDE
     Indication: Product used for unknown indication
     Dosage: 10 MILLIGRAM,
     Route: 065
  6. SMECTA [Suspect]
     Active Substance: MONTMORILLONITE
     Indication: Product used for unknown indication
     Dosage: DIOSMECTITE 3 G PDRE P SUSP BUV SACH (SMECTA 3 G POWDER FOR ORAL SUSP, IN ORANGE VANILLA SACHET) 3 S
     Route: 065
  7. SMECTA [Suspect]
     Active Substance: MONTMORILLONITE
     Dosage: POWDER FOR ORAL SUSP, IN ORANGE VANILLA SACHET) 3 SACHETS A DAY FOR 10 DAYS
     Route: 065
  8. PROGESTERONE [Suspect]
     Active Substance: PROGESTERONE
     Indication: Product used for unknown indication
     Dosage: 1 DOSE OF GEL PER DAY ON THE BREASTS RP 6 MONTHS
     Route: 065
  9. ACETAMINOPHEN [Suspect]
     Active Substance: ACETAMINOPHEN
     Indication: Product used for unknown indication
     Dosage: 1 G, CAPSULE
     Route: 065
  10. ACETAMINOPHEN [Suspect]
     Active Substance: ACETAMINOPHEN
     Dosage: 1 G TLB/8 (4 TABLETS A DAY FOR ONE MONTH, IF NECESSARY) TABLET
     Route: 048
  11. PREGABALIN [Suspect]
     Active Substance: PREGABALIN
     Indication: Product used for unknown indication
     Dosage: PREGABAL MYL 100 MG GEL PLQ/84 TABLET
     Route: 048
  12. PREGABALIN [Suspect]
     Active Substance: PREGABALIN
     Dosage: PREGABAL MYL 100 MG GEL PLQ/84
     Route: 048
  13. PREGABALIN [Suspect]
     Active Substance: PREGABALIN
     Dosage: UNK, BID (100 MG CAPSULE TBLT/84 (TAKE 1 CAPSULE MORNING AND EVENING, FOR 3 MONTHS)
     Route: 048
  14. PREGABALIN [Suspect]
     Active Substance: PREGABALIN
     Dosage: 1 DF, BID
     Route: 048
  15. PREGABALIN [Suspect]
     Active Substance: PREGABALIN
     Dosage: 1 DF, BID
     Route: 065
  16. PREGABALIN [Suspect]
     Active Substance: PREGABALIN
     Dosage: PREGABAL MYL 100 MG GEL PLQ/84
     Route: 065
  17. PREGABALIN [Suspect]
     Active Substance: PREGABALIN
     Dosage: 100 MG
     Route: 065
  18. PREGABALIN [Suspect]
     Active Substance: PREGABALIN
     Dosage: UNK, BID (100 MG CAPSULE TBLT/84 (TAKE 1 CAPSULE MORNING AND EVENING, FOR 3 MONTHS)
     Route: 048
  19. PREGABALIN [Suspect]
     Active Substance: PREGABALIN
     Dosage: PREGABAL MYL 100 MG GEL PLQ/84
     Route: 065
  20. MIRTAZAPINE [Suspect]
     Active Substance: MIRTAZAPINE
     Indication: Product used for unknown indication
     Dosage: MERCK
     Route: 065
  21. MIRTAZAPINE [Suspect]
     Active Substance: MIRTAZAPINE
     Dosage: ARROW GENERIQUES 15 MG FI/30, (2 TABLETS IN THE EVENING FOR 3 MONTHS)  TABLET
     Route: 048
  22. METEOSPASMYL (ALVERINE CITRATE\DIMETHICONE) [Suspect]
     Active Substance: ALVERINE CITRATE\DIMETHICONE
     Indication: Product used for unknown indication
     Dosage: 300 MG 3 CAPSULES A DAY FOR 10 DAYS
     Route: 065
  23. METEOSPASMYL (ALVERINE CITRATE\DIMETHICONE) [Suspect]
     Active Substance: ALVERINE CITRATE\DIMETHICONE
     Dosage: B/20
     Route: 065
  24. METEOSPASMYL (ALVERINE CITRATE\DIMETHICONE) [Suspect]
     Active Substance: ALVERINE CITRATE\DIMETHICONE
     Dosage: B/20
     Route: 065
  25. LOCOID [Suspect]
     Active Substance: HYDROCORTISONE BUTYRATE
     Indication: Product used for unknown indication
     Dosage: 0.1 % GREME (LOCOID CF THICK T/30G)
     Route: 065
  26. LOCOID [Suspect]
     Active Substance: HYDROCORTISONE BUTYRATE
     Dosage: 0.1 % GREME (LOCOID CF THICK T/30G)
     Route: 065
  27. LOCOID [Suspect]
     Active Substance: HYDROCORTISONE BUTYRATE
     Dosage: 0.1 % GREME (LOCOID CF THICK T/30G)
     Route: 065
  28. CHLORMADINONE [Suspect]
     Active Substance: CHLORMADINONE
     Indication: Product used for unknown indication
     Dosage: 10 MG, MERCK, ONE TABLET PER DAY DURING 21 DAYS AND 7 DAYS OFF BY MOTHS
     Route: 065
     Dates: start: 2010
  29. CHLORMADINONE [Suspect]
     Active Substance: CHLORMADINONE
     Indication: Ovarian cyst
     Dosage: SANDOZ, ONE TABLET PER DAY DURATION 21 DAYS AND 7 DAYS OFF BY MONTH
     Route: 065
  30. CHLORMADINONE [Suspect]
     Active Substance: CHLORMADINONE
     Indication: Dysmenorrhoea
  31. BROMAZEPAM [Suspect]
     Active Substance: BROMAZEPAM
     Indication: Product used for unknown indication
     Dosage: 6 MG (6 MG TABS DOUBLE-SCORED 1 TBLT/30) 1/4 TABLET MORNING, NOON AND EVENING, FOR 3 MONTHS.
     Route: 048
  32. BROMAZEPAM [Suspect]
     Active Substance: BROMAZEPAM
     Dosage: 0.25 DF, TID TABLET, ORAL USE
     Route: 065
  33. BROMAZEPAM [Suspect]
     Active Substance: BROMAZEPAM
     Dosage: 6 MG MERCK
     Route: 065
  34. BROMAZEPAM [Suspect]
     Active Substance: BROMAZEPAM
     Dosage: 0.25 DF, TID
     Route: 048
  35. DAFALGAN [Suspect]
     Active Substance: ACETAMINOPHEN
     Indication: Product used for unknown indication
     Dosage: 4 DF, QD
     Route: 048
  36. DAFALGAN [Suspect]
     Active Substance: ACETAMINOPHEN
     Indication: Product used for unknown indication
     Dosage: 1 G TLB/8 (4 TABLETS A DAY FOR ONE MONTH,  IF NECESSARY)
     Route: 048
  37. GLYCERIN\MINERAL OIL\PETROLATUM [Suspect]
     Active Substance: GLYCERIN\MINERAL OIL\PETROLATUM
     Indication: Product used for unknown indication
     Dosage: GLYCEROL 15% + LIQUID PARAFFIN 2% + VASELINE 8% CREAM (DEXERYL CR T/250 ML)
     Route: 003
  38. GLYCERIN\MINERAL OIL\PETROLATUM [Suspect]
     Active Substance: GLYCERIN\MINERAL OIL\PETROLATUM
     Indication: Product used for unknown indication
  39. IBUPROFEN [Suspect]
     Active Substance: IBUPROFEN
     Indication: Product used for unknown indication
     Dosage: 5 %, TID (IBUFETUM 5% GEL T/60G) (APPLY 3 TIMES A DAY, FOR 1 MONTH)
     Route: 003
  40. IBUPROFEN [Suspect]
     Active Substance: IBUPROFEN
     Indication: Product used for unknown indication
  41. NOMEGESTROL ACETATE [Suspect]
     Active Substance: NOMEGESTROL ACETATE
     Indication: Ovarian cyst
     Dosage: 1 DF, QD
     Route: 065
     Dates: start: 20150403
  42. NOMEGESTROL ACETATE [Suspect]
     Active Substance: NOMEGESTROL ACETATE
     Indication: Menstruation irregular
     Dosage: 5 MG/1 TABLET PER DAY FOR 21 DAYS, STOP FOR 7 DAYS, AND RESUME
     Route: 065
     Dates: start: 20100621
  43. NOMEGESTROL ACETATE [Suspect]
     Active Substance: NOMEGESTROL ACETATE
     Indication: Product used for unknown indication
     Dosage: 1 DF, QD/LUTENYL 5, 1 TABLET PER DAY CONTINUOUSLY
     Route: 065
     Dates: start: 20170921
  44. NOMEGESTROL ACETATE [Suspect]
     Active Substance: NOMEGESTROL ACETATE
     Indication: Product used for unknown indication
     Dosage: 5 MG
     Route: 065
     Dates: start: 20140505
  45. NOMEGESTROL ACETATE [Suspect]
     Active Substance: NOMEGESTROL ACETATE
     Dosage: 1 DF, QD/LUTENYL 5, 1 TABLET PER DAY CONTINUOUSLY
     Route: 065
     Dates: start: 20181106, end: 20190117
  46. NOMEGESTROL ACETATE [Suspect]
     Active Substance: NOMEGESTROL ACETATE
     Dosage: 5 MG (TABLET)
     Route: 065
     Dates: start: 20170613
  47. NOMEGESTROL ACETATE [Suspect]
     Active Substance: NOMEGESTROL ACETATE
     Dosage: 5 MG/LUTENYL 5, 1 TABLET PER DAY CONTINUOUSLY
     Route: 065
     Dates: start: 20180329
  48. NOMEGESTROL ACETATE [Suspect]
     Active Substance: NOMEGESTROL ACETATE
     Dosage: 1 DF, QD
     Route: 065
     Dates: start: 20130517
  49. NOMEGESTROL ACETATE [Suspect]
     Active Substance: NOMEGESTROL ACETATE
     Dosage: 5 MG/LUTENYL 5, 1 TABLET PER DAY CONTINUOUSLY, TABLET
     Route: 065
     Dates: start: 20170307
  50. NOMEGESTROL ACETATE [Suspect]
     Active Substance: NOMEGESTROL ACETATE
     Dosage: 5 MG, 1 DF, QD, TABLET
     Route: 065
     Dates: start: 20171211
  51. NOMEGESTROL ACETATE [Suspect]
     Active Substance: NOMEGESTROL ACETATE
     Dosage: 5 MG/LUTENYL 5, 1 TABLET PER DAY CONTINUOUSLY
     Route: 065
     Dates: start: 20120514
  52. NOMEGESTROL ACETATE [Suspect]
     Active Substance: NOMEGESTROL ACETATE
     Dosage: 5 MG, UNKNOWN, TABLET
     Route: 065
     Dates: start: 20170918
  53. NOMEGESTROL ACETATE [Suspect]
     Active Substance: NOMEGESTROL ACETATE
     Dosage: UNK, QD( FOR 21 DAYS, STOP FOR 7 DAYS, THEN RESUME.)
     Route: 065
  54. NOMEGESTROL ACETATE [Suspect]
     Active Substance: NOMEGESTROL ACETATE
     Dosage: 5 MG, QD 1 TABLET IN THE EVENING FOR 3 MONTHS TABLET
     Route: 048
  55. NOMEGESTROL ACETATE [Suspect]
     Active Substance: NOMEGESTROL ACETATE
     Dosage: UNK LUTENYL5 1 CAPPER DAY CONTINUOUSLY
     Route: 065
  56. NOMEGESTROL ACETATE [Suspect]
     Active Substance: NOMEGESTROL ACETATE
     Dosage: 5 MG
     Route: 065
     Dates: start: 20170918
  57. NOMEGESTROL ACETATE [Suspect]
     Active Substance: NOMEGESTROL ACETATE
     Dosage: 5 MG, QD 1 TABLET IN THE EVENING FOR 3 MONTHS
     Route: 048
  58. CHLORMADINONE ACETATE [Suspect]
     Active Substance: CHLORMADINONE ACETATE
     Indication: Menstruation irregular
     Dosage: ONE TABLET PER DAY FOR 21 DAYS AND 7 DAYS OFF BY MONTHS TABLET
     Route: 065
  59. CHLORMADINONE ACETATE [Suspect]
     Active Substance: CHLORMADINONE ACETATE
     Indication: Ovarian cyst
     Dosage: 1 DF, QD FOR 21 DAYS/MERCK, ONE TABLET PER DAY DURING 21 DAYS AND 7 DAYS OFF BY MONTHS TABLET
     Route: 065
     Dates: start: 20190806
  60. CHLORMADINONE ACETATE [Suspect]
     Active Substance: CHLORMADINONE ACETATE
     Indication: Product used for unknown indication
     Dosage: 1 DF, QD FOR 21 DAYS
     Route: 065
     Dates: start: 20190715
  61. CHLORMADINONE ACETATE [Suspect]
     Active Substance: CHLORMADINONE ACETATE
     Indication: Menstruation irregular
     Dosage: 1 DF, QD FOR 21 DAYS TABLET
     Route: 065
     Dates: start: 20190117
  62. CHLORMADINONE ACETATE [Suspect]
     Active Substance: CHLORMADINONE ACETATE
     Indication: Product used for unknown indication
     Dosage: 1 DF, QD FOR 21 DAYS/ONE TABLET PER DAY DURING 21 DAYS AND 7 DAYS OFF BY MONTHS TABLET
     Route: 065
     Dates: start: 20100317, end: 20100621
  63. CHLORMADINONE ACETATE [Suspect]
     Active Substance: CHLORMADINONE ACETATE
     Dosage: 10 MG, UNKNOWN
     Route: 065
     Dates: start: 20100317
  64. CHLORMADINONE ACETATE [Suspect]
     Active Substance: CHLORMADINONE ACETATE
     Dosage: 10 MG,
     Route: 065
     Dates: start: 20190117
  65. CHLORMADINONE ACETATE [Suspect]
     Active Substance: CHLORMADINONE ACETATE
     Dosage: 10 MG, UNKNOWN
     Dates: start: 20190715
  66. CHLORMADINONE ACETATE [Suspect]
     Active Substance: CHLORMADINONE ACETATE
     Dosage: 10 MG, UNKNOWN
     Route: 065
     Dates: start: 20191028
  67. CHLORMADINONE ACETATE [Suspect]
     Active Substance: CHLORMADINONE ACETATE
     Dosage: PER DAY 21 DAYS OFF 7 DAYS RP 6 MONTHS
     Route: 065
  68. CHLORMADINONE ACETATE [Suspect]
     Active Substance: CHLORMADINONE ACETATE
     Dosage: 5 MG
     Route: 065
     Dates: start: 20170918
  69. CHLORMADINONE ACETATE [Suspect]
     Active Substance: CHLORMADINONE ACETATE
     Dosage: 10 MG
     Route: 065
     Dates: start: 20100317
  70. CHLORMADINONE ACETATE [Suspect]
     Active Substance: CHLORMADINONE ACETATE
     Dosage: 10 MG
     Route: 065
     Dates: start: 20190117
  71. CHLORMADINONE ACETATE [Suspect]
     Active Substance: CHLORMADINONE ACETATE
     Dosage: 10 MG
     Route: 065
     Dates: start: 20190715
  72. CHLORMADINONE ACETATE [Suspect]
     Active Substance: CHLORMADINONE ACETATE
     Dosage: 10 MG
     Route: 065
     Dates: start: 20191028
  73. LYRICA [Suspect]
     Active Substance: PREGABALIN
     Indication: Product used for unknown indication
     Dosage: 1 DF, BID
     Route: 048
  74. MIRTAZAPINE [Suspect]
     Active Substance: MIRTAZAPINE
     Indication: Product used for unknown indication
     Dosage: ARROW GENERIQUES 15 MG FI/30, (2 TABLETS IN THE EVENING FOR 3 MONTHS)
     Route: 048
  75. MIRTAZAPINE [Suspect]
     Active Substance: MIRTAZAPINE
     Indication: Product used for unknown indication
     Dosage: 15 MILLIGRAM, TABLET
     Route: 048
  76. TRAMADOL HYDROCHLORIDE [Suspect]
     Active Substance: TRAMADOL HYDROCHLORIDE
     Indication: Complex regional pain syndrome
     Dosage: 150 MG, QD (150 MG CAPSULE LP ONCE-DAILY 5) TAKE 1 CAPSULE IN THE EVENING FOR 3 MONTHS)
     Route: 048
  77. TRAMADOL HYDROCHLORIDE [Suspect]
     Active Substance: TRAMADOL HYDROCHLORIDE
     Indication: Product used for unknown indication
  78. TRAMADOL HYDROCHLORIDE [Suspect]
     Active Substance: TRAMADOL HYDROCHLORIDE
     Indication: Product used for unknown indication
  79. TIAPRIDE HYDROCHLORIDE [Suspect]
     Active Substance: TIAPRIDE HYDROCHLORIDE
     Indication: Product used for unknown indication
     Dosage: 100 MG (100 SCORED TABLET PLQ/20) 1 TABLET THE EVENING FOR 3 MONTHS
     Route: 048
  80. TIAPRIDE HYDROCHLORIDE [Suspect]
     Active Substance: TIAPRIDE HYDROCHLORIDE
     Dosage: 150 MG, QD (150 MG CAPSULE LP ONCE-DAILY 5) TAKE 1 CAPSULE IN THE EVENING FOR 3 MONTHS)
     Route: 048
  81. NOMEGESTROL [Suspect]
     Active Substance: NOMEGESTROL
     Indication: Product used for unknown indication
     Dosage: 5 MG, RATIOPHARM, ONE TABLET PER DAY DURING 21 DAYS AND 7 DAYS OFF BY MONTHS
     Route: 065
  82. NOMEGESTROL [Suspect]
     Active Substance: NOMEGESTROL
     Indication: Product used for unknown indication
     Dosage: 5 MG, ARROW
     Route: 065
  83. NOMEGESTROL [Suspect]
     Active Substance: NOMEGESTROL
     Indication: Ovarian cyst
     Dosage: 5 MG, MERCK
     Route: 065
  84. NOMEGESTROL [Suspect]
     Active Substance: NOMEGESTROL
     Dosage: UNK
     Route: 065
  85. NOMEGESTROL [Suspect]
     Active Substance: NOMEGESTROL
     Dosage: UNK
     Route: 065
  86. NOMEGESTROL [Suspect]
     Active Substance: NOMEGESTROL
     Dosage: UNK
     Route: 065
  87. NOMEGESTROL [Suspect]
     Active Substance: NOMEGESTROL
     Dosage: UNK
     Route: 065
  88. NOMEGESTROL [Suspect]
     Active Substance: NOMEGESTROL
     Dosage: UNK
     Route: 065
  89. NOMEGESTROL [Suspect]
     Active Substance: NOMEGESTROL
     Dosage: UNK
     Route: 065
  90. NOMEGESTROL [Suspect]
     Active Substance: NOMEGESTROL
     Dosage: UNK
     Route: 065
  91. NOMEGESTROL [Suspect]
     Active Substance: NOMEGESTROL
     Dosage: UNK
     Route: 065
  92. NOMEGESTROL [Suspect]
     Active Substance: NOMEGESTROL
     Dosage: UNK
     Route: 065
  93. NOMEGESTROL [Suspect]
     Active Substance: NOMEGESTROL
     Dosage: UNK
     Route: 065
  94. NOMEGESTROL [Suspect]
     Active Substance: NOMEGESTROL
     Dosage: UNK
     Route: 065
  95. NOMEGESTROL [Suspect]
     Active Substance: NOMEGESTROL
     Dosage: UNK
     Route: 065
  96. NOMEGESTROL [Suspect]
     Active Substance: NOMEGESTROL
     Dosage: UNK
     Route: 065
  97. NOMEGESTROL [Suspect]
     Active Substance: NOMEGESTROL
     Dosage: UNK
     Route: 065
  98. NOMEGESTROL [Suspect]
     Active Substance: NOMEGESTROL
     Dosage: UNK
     Route: 065
  99. NOMEGESTROL [Suspect]
     Active Substance: NOMEGESTROL
     Dosage: UNK
     Route: 065
  100. NOMEGESTROL [Suspect]
     Active Substance: NOMEGESTROL
     Dosage: UNK
     Route: 065
  101. NOMEGESTROL [Suspect]
     Active Substance: NOMEGESTROL
     Dosage: UNK
     Route: 065
  102. NOMEGESTROL [Suspect]
     Active Substance: NOMEGESTROL
     Dosage: UNK
     Route: 065
  103. NOMEGESTROL [Suspect]
     Active Substance: NOMEGESTROL
     Dosage: UNK
     Route: 065
  104. NOMEGESTROL [Suspect]
     Active Substance: NOMEGESTROL
     Dosage: UNK
     Route: 065
  105. NOMEGESTROL [Suspect]
     Active Substance: NOMEGESTROL
     Dosage: UNK
     Route: 065
  106. NOMEGESTROL [Suspect]
     Active Substance: NOMEGESTROL
     Dosage: UNK
     Route: 065
  107. NOMEGESTROL [Suspect]
     Active Substance: NOMEGESTROL
     Dosage: UNK
     Route: 065
  108. NOMEGESTROL [Suspect]
     Active Substance: NOMEGESTROL
     Dosage: UNK
     Route: 065
  109. NOMEGESTROL [Suspect]
     Active Substance: NOMEGESTROL
     Dosage: UNK
     Route: 065
  110. NOMEGESTROL [Suspect]
     Active Substance: NOMEGESTROL
     Dosage: UNK
     Route: 065
  111. NOMEGESTROL [Suspect]
     Active Substance: NOMEGESTROL
     Dosage: UNK
     Route: 065
  112. NOMEGESTROL [Suspect]
     Active Substance: NOMEGESTROL
     Dosage: UNK
     Route: 065
  113. NOMEGESTROL [Suspect]
     Active Substance: NOMEGESTROL
     Dosage: UNK
     Route: 065
  114. NOMEGESTROL [Suspect]
     Active Substance: NOMEGESTROL
     Dosage: UNK
     Route: 065
  115. NOMEGESTROL [Suspect]
     Active Substance: NOMEGESTROL
     Dosage: UNK
     Route: 065
  116. NOMEGESTROL [Suspect]
     Active Substance: NOMEGESTROL
     Dosage: UNK
     Route: 065
  117. NOMEGESTROL [Suspect]
     Active Substance: NOMEGESTROL
     Dosage: UNK
     Route: 065
  118. NOMEGESTROL [Suspect]
     Active Substance: NOMEGESTROL
     Dosage: UNK
     Route: 065
  119. NOMEGESTROL [Suspect]
     Active Substance: NOMEGESTROL
     Dosage: UNK
     Route: 065
  120. NOMEGESTROL [Suspect]
     Active Substance: NOMEGESTROL
     Dosage: UNK
     Route: 065
  121. NOMEGESTROL [Suspect]
     Active Substance: NOMEGESTROL
     Dosage: UNK
     Route: 065
  122. NOMEGESTROL [Suspect]
     Active Substance: NOMEGESTROL
     Dosage: UNK
     Route: 065
  123. NOMEGESTROL [Suspect]
     Active Substance: NOMEGESTROL
     Dosage: UNK
     Route: 065
  124. NOMEGESTROL [Suspect]
     Active Substance: NOMEGESTROL
     Dosage: UNK
     Route: 065
  125. NOMEGESTROL [Suspect]
     Active Substance: NOMEGESTROL
     Dosage: UNK
     Route: 065
  126. NOMEGESTROL [Suspect]
     Active Substance: NOMEGESTROL
     Dosage: UNK
     Route: 065
  127. NOMEGESTROL [Suspect]
     Active Substance: NOMEGESTROL
     Dosage: UNK
     Route: 065
  128. NOMEGESTROL [Suspect]
     Active Substance: NOMEGESTROL
     Dosage: UNK
     Route: 065
  129. NOMEGESTROL [Suspect]
     Active Substance: NOMEGESTROL
     Dosage: UNK
     Route: 065
  130. NOMEGESTROL [Suspect]
     Active Substance: NOMEGESTROL
     Dosage: UNK, MERCK,ONE TABLET PER DAY DURING 21 DAYS AND 7 DAYS OFF BY MONTHS
     Route: 065
  131. NOMEGESTROL [Suspect]
     Active Substance: NOMEGESTROL
     Dosage: 5 MG
     Route: 065
  132. CHLORMADINONE ACETATE [Suspect]
     Active Substance: CHLORMADINONE ACETATE
     Indication: Menstruation irregular
     Dosage: ONE TABLET PER DAY DURING 21 DAYS AND 7 DAYS OFF BY MONTHS
     Route: 065
     Dates: start: 20191028
  133. BROMAZEPAM [Concomitant]
     Active Substance: BROMAZEPAM
     Indication: Product used for unknown indication
     Dosage: 18 MILLIGRAMS, QD6 MG (6 MG TABS DOUBLE-SCORED 1 TBLT/30) 1/4 TABLET MORNING, NOON AND EVENING, FOR
     Route: 048
  134. BROMAZEPAM [Concomitant]
     Active Substance: BROMAZEPAM
     Dosage: 18 MILLIGRAMS, QD 6 MG (6 MG TABS DOUBLE-SCORED 1 TBLT/30) 1/4 TABLET MORNING, NOON AND EVENING, FOR
     Route: 048
  135. BROMAZEPAM [Concomitant]
     Active Substance: BROMAZEPAM
     Dosage: 6 MILLIGRAMS
     Route: 065
  136. GLYCERIN\MINERAL OIL\PETROLATUM [Suspect]
     Active Substance: GLYCERIN\MINERAL OIL\PETROLATUM
     Indication: Product used for unknown indication
     Dosage: GLYCEROL 15% + LIQUID PARAFFIN 2% + VASELINE 8% CREAM (DEXERYL CR T/250 ML)
     Route: 065
  137. CHLORMADINONE ACETATE [Suspect]
     Active Substance: CHLORMADINONE ACETATE
     Indication: Menstruation irregular
     Dosage: ONE TABLET PER DAY DURING 21 DAYS AND 7 DAYS OFF BY MONTHS
     Route: 065
     Dates: start: 20140505
  138. CHLORMADINONE ACETATE [Suspect]
     Active Substance: CHLORMADINONE ACETATE
     Indication: Ovarian cyst
     Dosage: 1 DF , QD FOR 21 DAYS/MERCK , ONE TABLET PER DAY DURING 21 DAYS AND 7 DAYS OFF BY MONTHS
     Route: 065
     Dates: start: 20190806
  139. CHLORMADINONE ACETATE [Suspect]
     Active Substance: CHLORMADINONE ACETATE
     Indication: Menstruation irregular
     Dosage: 1 DF , QD FOR 21 DAYS
     Route: 065
     Dates: start: 20190715
  140. CHLORMADINONE ACETATE [Suspect]
     Active Substance: CHLORMADINONE ACETATE
     Dosage: 1 DF , QD FOR 21 DAYS
     Route: 065
     Dates: start: 20190117
  141. CHLORMADINONE ACETATE [Suspect]
     Active Substance: CHLORMADINONE ACETATE
     Dosage: 1 DF , QD FOR 21 DAYS/ONE TABLET PER DAY DURING 21 DAYS AND 7 DAYS OFF BY MONTHS
     Route: 065
     Dates: start: 20100317, end: 20100621
  142. PREGABALIN [Suspect]
     Active Substance: PREGABALIN
     Indication: Product used for unknown indication
     Dosage: PREGABAL MYL 100 MG  GEL PLQ/84
     Route: 048
  143. PREGABALIN [Suspect]
     Active Substance: PREGABALIN
     Dosage: UNK, QD
     Route: 048
  144. PREGABALIN [Suspect]
     Active Substance: PREGABALIN
     Dosage: PREGABAL MYL 100 MG  GEL PLQ/84
     Route: 065
  145. PREGABALIN [Suspect]
     Active Substance: PREGABALIN
     Dosage: 100 MILLIGRAM
     Route: 048
  146. PREGABALIN [Suspect]
     Active Substance: PREGABALIN
     Dosage: 100 MILLIGRAM
     Route: 048
  147. PREGABALIN [Suspect]
     Active Substance: PREGABALIN
     Dosage: UNK, BID (100 MG CAPSULE TBLT/84 (TAKE 1 CAPSULE MORNING AND EVENING, FOR 3 MONTHS)
     Route: 048
  148. PREGABALIN [Suspect]
     Active Substance: PREGABALIN
     Dosage: PREGABAL MYL 100 MG GEL PLQ/84
     Route: 048
  149. PREGABALIN [Suspect]
     Active Substance: PREGABALIN
     Dosage: UNK, BID (100 MG CAPSULE TBLT/84 (TAKE 1 CAPSULE MORNING AND EVENING, FOR 3 MONTHS)
     Route: 048
  150. PREGABALIN [Suspect]
     Active Substance: PREGABALIN
     Indication: Product used for unknown indication
     Dosage: 1 DF, BID
     Route: 048
  151. TIAPRIDE HYDROCHLORIDE [Concomitant]
     Active Substance: TIAPRIDE HYDROCHLORIDE
     Indication: Product used for unknown indication
     Dosage: 100 MG (100 SCORED TABLET PLQ/20) 1 TABLET THE EVENING FOR 3 MONTHS
     Route: 048
  152. NOMEGESTROL ACETATE [Suspect]
     Active Substance: NOMEGESTROL ACETATE
     Indication: Product used for unknown indication
     Dosage: 5 MG
     Route: 065
     Dates: start: 20200621
  153. NOMEGESTROL ACETATE [Suspect]
     Active Substance: NOMEGESTROL ACETATE
     Dosage: 5 MG
     Route: 065
     Dates: start: 20120515
  154. NOMEGESTROL ACETATE [Suspect]
     Active Substance: NOMEGESTROL ACETATE
     Dosage: 5 MG
     Route: 065
     Dates: start: 20140505
  155. NOMEGESTROL ACETATE [Suspect]
     Active Substance: NOMEGESTROL ACETATE
     Dosage: 5 MG
     Route: 065
     Dates: start: 20170307
  156. NOMEGESTROL ACETATE [Suspect]
     Active Substance: NOMEGESTROL ACETATE
     Dosage: 5 MG
     Route: 065
     Dates: start: 20170613
  157. NOMEGESTROL ACETATE [Suspect]
     Active Substance: NOMEGESTROL ACETATE
     Dosage: 5 MG
     Route: 065
     Dates: start: 20170918
  158. NOMEGESTROL ACETATE [Suspect]
     Active Substance: NOMEGESTROL ACETATE
     Dosage: 5 MG
     Route: 065
     Dates: start: 20171211
  159. NOMEGESTROL ACETATE [Suspect]
     Active Substance: NOMEGESTROL ACETATE
     Dosage: 5 MG
     Route: 065
     Dates: start: 20180329
  160. NOMEGESTROL ACETATE [Suspect]
     Active Substance: NOMEGESTROL ACETATE
     Dosage: UNK, QD( FOR 21 DAYS, STOP FOR 7 DAYS,  THEN RESUME.)
     Route: 065
  161. NOMEGESTROL ACETATE [Suspect]
     Active Substance: NOMEGESTROL ACETATE
     Dosage: UNK
  162. NOMEGESTROL ACETATE [Suspect]
     Active Substance: NOMEGESTROL ACETATE
     Dosage: 5 MG, QD 1 TABLET IN THE EVENING FOR 3  MONTHS
     Route: 048
  163. NOMEGESTROL ACETATE [Suspect]
     Active Substance: NOMEGESTROL ACETATE
     Dosage: UNK LUTENYL5 1 CAPPER DAY  CONTINUOUSLY
     Route: 065
  164. HYDROCORTISONE BUTYRATE [Suspect]
     Active Substance: HYDROCORTISONE BUTYRATE
     Indication: Product used for unknown indication
     Dosage: 0.1 %, GREME (LOCOID CF THICK T/30G)
     Route: 065
  165. HYDROCORTISONE BUTYRATE [Suspect]
     Active Substance: HYDROCORTISONE BUTYRATE
     Dosage: 0.1 %, GREME (LOCOID CF THICK T/30G)
     Route: 065
  166. TRAMADOL HYDROCHLORIDE [Suspect]
     Active Substance: TRAMADOL HYDROCHLORIDE
     Indication: Product used for unknown indication
     Dosage: 150 MG, QD (150 MG CAPSULE LP ONCE-DAILY 5) TAKE 1 CAPSULE IN THE EVENING FOR 3 MONTHS)
     Route: 048
  167. PROGESTERONE [Suspect]
     Active Substance: PROGESTERONE
     Indication: Product used for unknown indication
     Dosage: 1 DOSE OF GEL PER DAY ON THE BREASTS RP  6 MONTHS
     Route: 065
  168. TIAPRIDE HYDROCHLORIDE [Suspect]
     Active Substance: TIAPRIDE HYDROCHLORIDE
     Indication: Product used for unknown indication
     Dosage: 100 MILLIGRAM
     Route: 065
  169. ACETAMINOPHEN [Suspect]
     Active Substance: ACETAMINOPHEN
     Indication: Product used for unknown indication
     Dosage: 4 G, QD, 1 G TLB/8 (4 TABLETS A DAY FOR ONE MONTH, IF NECESSARY)
     Route: 048
  170. CETIRIZINE HYDROCHLORIDE [Concomitant]
     Active Substance: CETIRIZINE HYDROCHLORIDE
     Indication: Product used for unknown indication
     Dosage: 1 DF, QD/ONCE IN THE EVENING (FILM-COATED TABLET)
     Route: 065

REACTIONS (58)
  - Meningioma [Recovered/Resolved with Sequelae]
  - Meningioma [Unknown]
  - Mental disability [Unknown]
  - Hospitalisation [Unknown]
  - Epistaxis [Not Recovered/Not Resolved]
  - Brain compression [Unknown]
  - Pain in extremity [Not Recovered/Not Resolved]
  - Muscular weakness [Not Recovered/Not Resolved]
  - Dizziness [Not Recovered/Not Resolved]
  - Headache [Not Recovered/Not Resolved]
  - Neuralgia [Not Recovered/Not Resolved]
  - Asthenia [Not Recovered/Not Resolved]
  - Pain [Unknown]
  - Eating disorder [Unknown]
  - Discomfort [Unknown]
  - Sleep disorder [Unknown]
  - Hypoaesthesia [Unknown]
  - Fibromyalgia [Unknown]
  - Decreased appetite [Unknown]
  - Endometrial thickening [Unknown]
  - Electric shock sensation [Unknown]
  - Uterine polyp [Unknown]
  - Sensory loss [Unknown]
  - Scar [Not Recovered/Not Resolved]
  - Limb discomfort [Unknown]
  - Pain [Unknown]
  - Asthenia [Not Recovered/Not Resolved]
  - Amnesia [Unknown]
  - Anxiety disorder [Unknown]
  - Gait disturbance [Unknown]
  - Memory impairment [Unknown]
  - Insomnia [Unknown]
  - Hypoaesthesia [Unknown]
  - Vaginal discharge [Unknown]
  - Weight increased [Unknown]
  - Irritability [Unknown]
  - Intermenstrual bleeding [Unknown]
  - Claustrophobia [Unknown]
  - Bradyphrenia [Unknown]
  - Disturbance in attention [Unknown]
  - White matter lesion [Unknown]
  - Panic attack [Unknown]
  - Anticipatory anxiety [Unknown]
  - Mood swings [Unknown]
  - Learning disorder [Unknown]
  - Malaise [Unknown]
  - Menometrorrhagia [Unknown]
  - Aphasia [Unknown]
  - Glucose tolerance impaired [Unknown]
  - Hypercholesterolaemia [Unknown]
  - Avoidant personality disorder [Unknown]
  - Attention deficit hyperactivity disorder [Unknown]
  - Fibroma [Unknown]
  - Procedural pain [Unknown]
  - Agoraphobia [Unknown]
  - Condition aggravated [Unknown]
  - Hemiparesis [Unknown]
  - Syncope [Unknown]

NARRATIVE: CASE EVENT DATE: 20150101
